FAERS Safety Report 14692409 (Version 4)
Quarter: 2018Q2

REPORT INFORMATION
  Report Type: Report from Study
  Country: None (occurrence: BR)
  Receive Date: 20180329
  Receipt Date: 20180409
  Transmission Date: 20180711
  Serious: Yes (Other)
  Sender: FDA-Public Use
  Company Number: BR-ABBVIE-18K-020-2300695-00

PATIENT
  Age: 40 Year
  Sex: Male
  Weight: 65 kg

DRUGS (6)
  1. IMURAN [Concomitant]
     Active Substance: AZATHIOPRINE
     Indication: COLITIS ULCERATIVE
     Route: 048
     Dates: start: 2004
  2. HUMIRA [Suspect]
     Active Substance: ADALIMUMAB
     Dosage: LOADING DOSE, WEEK 02
     Route: 058
     Dates: start: 201701, end: 201701
  3. HUMIRA [Suspect]
     Active Substance: ADALIMUMAB
     Dosage: MAINTENANCE DOSE.
     Route: 058
     Dates: start: 2017, end: 2018
  4. HUMIRA [Suspect]
     Active Substance: ADALIMUMAB
     Route: 058
     Dates: start: 2018
  5. HUMIRA [Suspect]
     Active Substance: ADALIMUMAB
     Indication: COLITIS ULCERATIVE
     Dosage: LOADING DOSE, WEEK ZERO
     Route: 058
     Dates: start: 20170101, end: 20170101
  6. MESALAZINE [Concomitant]
     Active Substance: MESALAMINE
     Indication: COLITIS ULCERATIVE
     Route: 048
     Dates: start: 2004

REACTIONS (7)
  - Fistula [Recovering/Resolving]
  - Pruritus generalised [Not Recovered/Not Resolved]
  - Haemorrhoids [Recovering/Resolving]
  - Cerebral disorder [Not Recovered/Not Resolved]
  - Blood test abnormal [Unknown]
  - Dengue fever [Recovered/Resolved]
  - Pain [Unknown]

NARRATIVE: CASE EVENT DATE: 2017
